FAERS Safety Report 18078847 (Version 1)
Quarter: 2020Q3

REPORT INFORMATION
  Report Type: Spontaneous
  Country: US (occurrence: US)
  Receive Date: 20200728
  Receipt Date: 20200728
  Transmission Date: 20201103
  Serious: No
  Sender: FDA-Public Use
  Company Number: US-GLENMARK PHARMACEUTICALS-2019GMK042738

PATIENT

DRUGS (1)
  1. MUPIROCIN OINTMENT USP, 2% [Suspect]
     Active Substance: MUPIROCIN
     Indication: RHINITIS
     Dosage: UNK, BID
     Route: 045
     Dates: start: 20190811, end: 20190813

REACTIONS (6)
  - Product use issue [Unknown]
  - Nausea [Not Recovered/Not Resolved]
  - Incorrect route of product administration [Unknown]
  - Eye pain [Recovering/Resolving]
  - Eye irritation [Recovering/Resolving]
  - Dizziness [Not Recovered/Not Resolved]

NARRATIVE: CASE EVENT DATE: 20190811
